FAERS Safety Report 8319810-3 (Version None)
Quarter: 2012Q2

REPORT INFORMATION
  Report Type: 
  Country: None (occurrence: None)
  Receive Date: 20120427
  Receipt Date: 20120419
  Transmission Date: 20120825
  Serious: Yes (Other)
  Sender: FDA-Public Use
  Company Number: US-US-EMD SERONO, INC.-7060105

PATIENT
  Sex: Male

DRUGS (2)
  1. REBIF [Suspect]
     Indication: MULTIPLE SCLEROSIS
     Route: 058
     Dates: start: 20070517, end: 20110316
  2. REBIF [Suspect]
     Route: 058
     Dates: start: 20111019, end: 20111114

REACTIONS (1)
  - NON-HODGKIN'S LYMPHOMA STAGE III [None]
